FAERS Safety Report 10272197 (Version 3)
Quarter: 2014Q4

REPORT INFORMATION
  Report Type: Report from Study
  Country: CA (occurrence: CA)
  Receive Date: 20140702
  Receipt Date: 20141124
  Transmission Date: 20150528
  Serious: Yes (Other)
  Sender: FDA-Public Use
  Company Number: CA-AMGEN-CANSP2014000180

PATIENT
  Age: 69 Year
  Sex: Female

DRUGS (11)
  1. PANTOPRAZOLE                       /01263204/ [Concomitant]
     Dosage: UNK, 1 TABLET DAILY
  2. LIPITOR [Concomitant]
     Active Substance: ATORVASTATIN CALCIUM
     Dosage: UNK
  3. EFFEXOR [Concomitant]
     Active Substance: VENLAFAXINE HYDROCHLORIDE
     Dosage: UNK
  4. METFORMIN [Concomitant]
     Active Substance: METFORMIN HYDROCHLORIDE
     Dosage: UNK
  5. VITAMINS                           /00067501/ [Concomitant]
     Dosage: UNK
  6. SYNTHROID [Concomitant]
     Active Substance: LEVOTHYROXINE SODIUM
     Dosage: UNK
  7. ENBREL [Suspect]
     Active Substance: ETANERCEPT
     Indication: RHEUMATOID ARTHRITIS
     Dosage: 50 MG, UNK
     Route: 065
     Dates: start: 20130721
  8. ATORVASTATIN [Concomitant]
     Active Substance: ATORVASTATIN
     Dosage: UNK
  9. METHOTREXATE (METHOTREXATE SODIUM) [Concomitant]
     Active Substance: METHOTREXATE SODIUM
     Dosage: UNK
  10. LEUCOVORIN                         /00566701/ [Concomitant]
     Active Substance: LEUCOVORIN
     Dosage: UNK
  11. VENLAFAXINE [Concomitant]
     Active Substance: VENLAFAXINE HYDROCHLORIDE
     Dosage: UNK

REACTIONS (6)
  - Drug ineffective [Unknown]
  - Pain in extremity [Recovered/Resolved]
  - Pain [Not Recovered/Not Resolved]
  - Mobility decreased [Recovered/Resolved]
  - Loss of consciousness [Recovered/Resolved]
  - Muscle spasms [Not Recovered/Not Resolved]

NARRATIVE: CASE EVENT DATE: 20130721
